FAERS Safety Report 11179582 (Version 1)
Quarter: 2015Q2

REPORT INFORMATION
  Report Type: Spontaneous
  Country: FR (occurrence: FR)
  Receive Date: 20150611
  Receipt Date: 20150611
  Transmission Date: 20150821
  Serious: Yes (Life-Threatening)
  Sender: FDA-Public Use
  Company Number: FR-ROCHE-1591131

PATIENT
  Age: 71 Year
  Sex: Male

DRUGS (8)
  1. ACTILYSE [Suspect]
     Active Substance: ALTEPLASE
     Indication: ISCHAEMIC STROKE
     Dosage: 67MG INTRAVENOUS PERFUSION OVER 60MIN
     Route: 042
     Dates: start: 20150411, end: 20150411
  2. LASILIX [Concomitant]
     Active Substance: FUROSEMIDE
     Indication: PRODUCT USED FOR UNKNOWN INDICATION
     Dosage: 20 MG,1 TABLET MORNING?LONG TERM TREATMENT
     Route: 048
  3. PLAVIX [Concomitant]
     Active Substance: CLOPIDOGREL BISULFATE
     Indication: PRODUCT USED FOR UNKNOWN INDICATION
     Dosage: 75 MG, ONE TABLET MORNING
     Route: 065
     Dates: start: 20150220
  4. KARDEGIC [Concomitant]
     Active Substance: ASPIRIN LYSINE
     Indication: PRODUCT USED FOR UNKNOWN INDICATION
     Dosage: 160 MG,1 BAG MIDDAY?LONG TERM TREATMENT
     Route: 048
  5. SOLUPRED (FRANCE) [Concomitant]
     Active Substance: PREDNISOLONE
     Dosage: 3 TABLETS IN THE MORNING
     Route: 065
     Dates: end: 20150424
  6. LERCANIDIPINE HYDROCHLORIDE [Concomitant]
     Active Substance: LERCANIDIPINE HYDROCHLORIDE
     Indication: PRODUCT USED FOR UNKNOWN INDICATION
     Dosage: 10 MG,1 TABLET IN THE MORNING?LONG TERM TREATMENT
     Route: 048
  7. ATORVASTATINE [Concomitant]
     Active Substance: ATORVASTATIN
     Dosage: 80 MG,1 TABLET AT NIGHT?LONG TERM TREATMENT
     Route: 048
  8. LANSOPRAZOLE. [Concomitant]
     Active Substance: LANSOPRAZOLE
     Indication: PRODUCT USED FOR UNKNOWN INDICATION
     Dosage: 15 MG,1 TABLET MORNING?LONG TERM TREATMENT
     Route: 048

REACTIONS (1)
  - Fat embolism [Recovered/Resolved with Sequelae]

NARRATIVE: CASE EVENT DATE: 20150412
